FAERS Safety Report 12954952 (Version 2)
Quarter: 2016Q4

REPORT INFORMATION
  Report Type: Report from Study
  Country: US (occurrence: US)
  Receive Date: 20161118
  Receipt Date: 20161227
  Transmission Date: 20170207
  Serious: Yes (Hospitalization)
  Sender: FDA-Public Use
  Company Number: US-MALLINCKRODT-T201605750

PATIENT
  Age: 32 Year
  Sex: Female

DRUGS (2)
  1. REPOSITORY CORTICOTROPIN INJECTION [Suspect]
     Active Substance: CORTICOTROPIN
     Indication: PROTEINURIA
     Dosage: 40 UNITS/0.5 ML TWO TIMES PER WEEK
     Route: 058
     Dates: start: 20160330, end: 201610
  2. REPOSITORY CORTICOTROPIN INJECTION [Suspect]
     Active Substance: CORTICOTROPIN
     Indication: NEPHROTIC SYNDROME

REACTIONS (2)
  - Myocardial infarction [Recovered/Resolved]
  - Pneumonia [Unknown]

NARRATIVE: CASE EVENT DATE: 20160925
